FAERS Safety Report 5535476-X (Version None)
Quarter: 2007Q4

REPORT INFORMATION
  Report Type: 
  Country: None (occurrence: None)
  Receive Date: 20071206
  Receipt Date: 20071127
  Transmission Date: 20080405
  Serious: Yes (Other)
  Sender: FDA-Public Use
  Company Number: US-ROCHE-523500

PATIENT
  Age: 42 Year
  Sex: Male

DRUGS (5)
  1. PEG-INTERFERON A-2A (RO 25-8310) [Suspect]
     Indication: HEPATITIS C
     Dosage: ON WEEK 16
     Route: 065
     Dates: start: 20070814
  2. RIBAVIRIN [Suspect]
     Indication: HEPATITIS C
     Dosage: ON WEEK 16
     Route: 065
     Dates: start: 20070814
  3. NICODERM [Concomitant]
     Route: 062
  4. AMBIEN [Concomitant]
     Dosage: DOSING: AS NEEDED
  5. XANAX [Concomitant]
     Dosage: DOSING: AS NEEDED

REACTIONS (2)
  - PULMONARY MASS [None]
  - RED BLOOD CELL COUNT DECREASED [None]
